FAERS Safety Report 6866937-9 (Version None)
Quarter: 2010Q3

REPORT INFORMATION
  Report Type: 
  Country: None (occurrence: None)
  Receive Date: 20100722
  Receipt Date: 20100714
  Transmission Date: 20110219
  Serious: Yes (Other)
  Sender: FDA-Public Use
  Company Number: US-ROCHE-707534

PATIENT
  Sex: Female
  Weight: 89.8 kg

DRUGS (9)
  1. PEGASYS [Suspect]
     Dosage: PRE-FILLED SYRINGE,
     Route: 058
     Dates: start: 20100506
  2. PEGASYS [Suspect]
     Route: 058
     Dates: start: 20100608, end: 20100709
  3. COPEGUS [Suspect]
     Dosage: DIVIDED DOSES
     Route: 048
     Dates: start: 20100506
  4. COPEGUS [Suspect]
     Route: 048
     Dates: start: 20100608, end: 20100709
  5. LISINOPRIL AND HYDROCHLOROTHIAZIDE [Concomitant]
     Indication: HYPERTENSION
     Route: 048
  6. CITALOPRAM HYDROBROMIDE [Concomitant]
     Indication: DEPRESSION
     Route: 048
     Dates: start: 20100402
  7. RANITIDINE [Concomitant]
     Route: 048
     Dates: start: 20100621
  8. PHENERGAN [Concomitant]
     Indication: NAUSEA
     Dosage: CO-INDICATION:VOMITING
     Route: 048
     Dates: start: 20100621, end: 20100709
  9. BUSPAR [Concomitant]
     Indication: DEPRESSION
     Dosage: CO-INDICATION:ANXIETY
     Route: 048
     Dates: start: 20100508

REACTIONS (3)
  - ANIMAL BITE [None]
  - RASH [None]
  - WHITE BLOOD CELL COUNT ABNORMAL [None]
